FAERS Safety Report 10006120 (Version 2)
Quarter: 2014Q2

REPORT INFORMATION
  Report Type: Report from Study
  Country: US (occurrence: US)
  Receive Date: 20140313
  Receipt Date: 20140424
  Transmission Date: 20141212
  Serious: Yes (Other)
  Sender: FDA-Public Use
  Company Number: PHEH2014US005020

PATIENT
  Sex: Female
  Weight: 113.47 kg

DRUGS (1)
  1. GILENYA [Suspect]
     Indication: MULTIPLE SCLEROSIS
     Dosage: 0.5 MG, QD
     Route: 048
     Dates: start: 20120814

REACTIONS (4)
  - Central nervous system lesion [Unknown]
  - Weight increased [Unknown]
  - Vitamin D deficiency [Unknown]
  - Pain in extremity [Unknown]
